FAERS Safety Report 15711526 (Version 2)
Quarter: 2018Q4

REPORT INFORMATION
  Report Type: Report from Study
  Country: None (occurrence: TW)
  Receive Date: 20181211
  Receipt Date: 20181230
  Transmission Date: 20190205
  Serious: Yes (Other)
  Sender: FDA-Public Use
  Company Number: TW-ABBVIE-18K-153-2580300-00

PATIENT
  Age: 66 Year
  Sex: Female
  Weight: 47.8 kg

DRUGS (2)
  1. HUMIRA [Suspect]
     Active Substance: ADALIMUMAB
     Indication: PSORIASIS
     Route: 058
  2. HUMIRA [Suspect]
     Active Substance: ADALIMUMAB
     Indication: PSORIASIS
     Route: 058
     Dates: start: 20150810

REACTIONS (4)
  - Herpes zoster [Recovered/Resolved with Sequelae]
  - Neuralgia [Recovering/Resolving]
  - Mycobacterium tuberculosis complex test positive [Recovered/Resolved]
  - Mycobacterium test positive [Recovered/Resolved]

NARRATIVE: CASE EVENT DATE: 201710
